FAERS Safety Report 14559497 (Version 2)
Quarter: 2018Q1

REPORT INFORMATION
  Report Type: Report from Study
  Country: US (occurrence: US)
  Receive Date: 20180221
  Receipt Date: 20180321
  Transmission Date: 20180509
  Serious: Yes (Hospitalization)
  Sender: FDA-Public Use
  Company Number: US-EXELIXIS-CABO-18011943

PATIENT
  Age: 85 Year
  Sex: Female

DRUGS (12)
  1. ELIQUIS [Suspect]
     Active Substance: APIXABAN
  2. METOPROLOL TARTRATE. [Concomitant]
     Active Substance: METOPROLOL TARTRATE
  3. FISH OIL [Suspect]
     Active Substance: FISH OIL
  4. DILTIAZEM. [Concomitant]
     Active Substance: DILTIAZEM
  5. LEVOTHYROXINE SODIUM. [Concomitant]
     Active Substance: LEVOTHYROXINE SODIUM
  6. LOSARTAN POTASSIUM. [Concomitant]
     Active Substance: LOSARTAN POTASSIUM
  7. MAGNESIUM GLUCONATE [Concomitant]
     Active Substance: MAGNESIUM GLUCONATE
  8. CABOMETYX [Suspect]
     Active Substance: CABOZANTINIB S-MALATE
     Dosage: 20 MG, QD
     Route: 048
     Dates: start: 20171216
  9. GLIPIZIDE. [Concomitant]
     Active Substance: GLIPIZIDE
  10. CETIRIZINE [Concomitant]
     Active Substance: CETIRIZINE HYDROCHLORIDE
  11. VITAMIN D [Concomitant]
     Active Substance: CHOLECALCIFEROL
  12. CABOMETYX [Suspect]
     Active Substance: CABOZANTINIB S-MALATE
     Indication: RENAL CANCER
     Dosage: 60 MG, QD
     Route: 048
     Dates: start: 20170912

REACTIONS (2)
  - Abdominal pain upper [Not Recovered/Not Resolved]
  - Ulcer haemorrhage [Unknown]

NARRATIVE: CASE EVENT DATE: 20171229
